FAERS Safety Report 7225914 (Version 5)
Quarter: 2015Q4

REPORT INFORMATION
  Report Type: Spontaneous
  Country: US (occurrence: US)
  Receive Date: 20091222
  Receipt Date: 20151207
  Transmission Date: 20160305
  Serious: Yes (Hospitalization, Other)
  Sender: FDA-Public Use
  Company Number: US-BAYER-200943221NA

PATIENT
  Age: 36 Year
  Sex: Female
  Weight: 73 kg

DRUGS (25)
  1. YAZ [Suspect]
     Active Substance: DROSPIRENONE\ETHINYL ESTRADIOL
     Route: 048
     Dates: start: 200705, end: 200711
  2. EFFEXOR [Concomitant]
     Active Substance: VENLAFAXINE HYDROCHLORIDE
  3. AVANDARYL [Concomitant]
     Active Substance: GLIMEPIRIDE\ROSIGLITAZONE MALEATE
  4. JANUVIA [Concomitant]
     Active Substance: SITAGLIPTIN PHOSPHATE
     Dates: end: 200811
  5. ZETIA [Concomitant]
     Active Substance: EZETIMIBE
     Dates: end: 200811
  6. TEMAZEPAM. [Concomitant]
     Active Substance: TEMAZEPAM
     Dosage: 15 MG, UNK
     Route: 048
  7. IBUPROFEN. [Concomitant]
     Active Substance: IBUPROFEN
     Dates: start: 1990
  8. PAROXETINE [Concomitant]
     Active Substance: PAROXETINE\PAROXETINE HYDROCHLORIDE
  9. VYTORIN [Concomitant]
     Active Substance: EZETIMIBE\SIMVASTATIN
  10. ROZEREM [Concomitant]
     Active Substance: RAMELTEON
  11. YASMIN [Suspect]
     Active Substance: DROSPIRENONE\ETHINYL ESTRADIOL
     Dosage: UNK
     Route: 048
     Dates: start: 20080202, end: 20080718
  12. KLONOPIN [Concomitant]
     Active Substance: CLONAZEPAM
     Dates: start: 2003
  13. ZOLPIDEM [Concomitant]
     Active Substance: ZOLPIDEM\ZOLPIDEM TARTRATE
  14. CYCLOBENZAPRINE [Concomitant]
     Active Substance: CYCLOBENZAPRINE
  15. METFORMIN [Concomitant]
     Active Substance: METFORMIN HYDROCHLORIDE
     Dates: end: 200811
  16. SIMVASTATIN. [Concomitant]
     Active Substance: SIMVASTATIN
  17. MIRTAZAPINE. [Concomitant]
     Active Substance: MIRTAZAPINE
  18. ZOFRAN [Concomitant]
     Active Substance: ONDANSETRON HYDROCHLORIDE
  19. IMITREX [Concomitant]
     Active Substance: SUMATRIPTAN\SUMATRIPTAN SUCCINATE
  20. LEXAPRO [Concomitant]
     Active Substance: ESCITALOPRAM OXALATE
     Dates: start: 2003
  21. LEVOTHYROXINE. [Concomitant]
     Active Substance: LEVOTHYROXINE
  22. ASA [Concomitant]
     Active Substance: ASPIRIN
     Dates: end: 200811
  23. STATIN [Concomitant]
     Active Substance: UNSPECIFIED INGREDIENT
     Dates: end: 20081115
  24. YAZ [Suspect]
     Active Substance: DROSPIRENONE\ETHINYL ESTRADIOL
     Route: 048
     Dates: start: 20080202, end: 200808
  25. CLONAZEPAM. [Concomitant]
     Active Substance: CLONAZEPAM

REACTIONS (11)
  - Haemorrhagic cerebral infarction [Recovering/Resolving]
  - Dizziness [Recovering/Resolving]
  - Dysphagia [Recovering/Resolving]
  - Photophobia [Recovering/Resolving]
  - Cerebellar haemorrhage [Recovering/Resolving]
  - Diplopia [Recovering/Resolving]
  - Nausea [Recovering/Resolving]
  - Balance disorder [Recovering/Resolving]
  - Hemiparesis [Recovering/Resolving]
  - Headache [Recovering/Resolving]
  - Embolism arterial [None]

NARRATIVE: CASE EVENT DATE: 20080812
